FAERS Safety Report 4305470-5 (Version None)
Quarter: 2004Q1

REPORT INFORMATION
  Report Type: 
  Country: None (occurrence: None)
  Receive Date: 20040225
  Receipt Date: 20040213
  Transmission Date: 20041129
  Serious: Yes (Other)
  Sender: FDA-Public Use
  Company Number: US-JNJFOC-20040102355

PATIENT
  Age: 22 Year
  Sex: Male
  Weight: 76.5 kg

DRUGS (4)
  1. REMICADE [Suspect]
     Indication: RHEUMATOID ARTHRITIS
     Dosage: SEE IMAGE
     Route: 042
     Dates: end: 20040115
  2. REMICADE [Suspect]
     Indication: RHEUMATOID ARTHRITIS
     Dosage: SEE IMAGE
     Route: 042
     Dates: start: 19960101
  3. METHOTREXATE [Concomitant]
  4. ARAVA [Concomitant]

REACTIONS (6)
  - ANTINUCLEAR ANTIBODY POSITIVE [None]
  - DNA ANTIBODY POSITIVE [None]
  - ELECTROCARDIOGRAM PR PROLONGATION [None]
  - PERICARDITIS [None]
  - PYREXIA [None]
  - TACHYCARDIA [None]
